FAERS Safety Report 8315151-9 (Version None)
Quarter: 2012Q2

REPORT INFORMATION
  Report Type: 
  Country: None (occurrence: None)
  Receive Date: 20120426
  Receipt Date: 20120424
  Transmission Date: 20120825
  Serious: Yes (Hospitalization)
  Sender: FDA-Public Use
  Company Number: US-GLAXOSMITHKLINE-A0970537A

PATIENT
  Age: 54 Year
  Sex: Female

DRUGS (3)
  1. COUMADIN [Concomitant]
     Dosage: 1MG UNKNOWN
  2. FLOLAN [Suspect]
     Indication: PULMONARY ARTERIAL HYPERTENSION
     Dosage: 47NGKM UNKNOWN
     Route: 042
     Dates: start: 20000302
  3. LASIX [Concomitant]
     Dosage: 40MGD PER DAY

REACTIONS (2)
  - PNEUMONIA [None]
  - ARRHYTHMIA [None]
